FAERS Safety Report 4681953-3 (Version None)
Quarter: 2005Q2

REPORT INFORMATION
  Report Type: 
  Country: None (occurrence: None)
  Receive Date: 20050602
  Receipt Date: 20050520
  Transmission Date: 20051028
  Serious: Yes (Death)
  Sender: FDA-Public Use
  Company Number: HQWYE893023MAY05

PATIENT
  Age: 66 Year
  Sex: Male

DRUGS (4)
  1. PANTOLOC (PANTOPRAZOLE, TABLET, DELAYED RELEASE) [Suspect]
     Indication: GASTROOESOPHAGEAL REFLUX DISEASE
     Dosage: 40 MG - ^SOME TIME (S) SOME DF^ ORAL
     Route: 048
     Dates: start: 20050322
  2. PAXIL [Concomitant]
  3. FOSAMAX [Concomitant]
  4. FLONASE [Concomitant]

REACTIONS (2)
  - CONCOMITANT DISEASE PROGRESSION [None]
  - HODGKIN'S DISEASE [None]
